FAERS Safety Report 7948374-9 (Version None)
Quarter: 2011Q4

REPORT INFORMATION
  Report Type: 
  Country: None (occurrence: None)
  Receive Date: 20111130
  Receipt Date: 20111004
  Transmission Date: 20120403
  Serious: Yes (Other)
  Sender: FDA-Public Use
  Company Number: HU-BAYER-2011-113197

PATIENT

DRUGS (1)
  1. RECOMBINATE [Suspect]
     Indication: FACTOR VIII DEFICIENCY
     Dosage: 250 IU, OW
     Route: 051

REACTIONS (1)
  - ANTI FACTOR VIII ANTIBODY POSITIVE [None]
